FAERS Safety Report 18204751 (Version 3)
Quarter: 2022Q3

REPORT INFORMATION
  Report Type: Spontaneous
  Country: US (occurrence: US)
  Receive Date: 20200827
  Receipt Date: 20220830
  Transmission Date: 20221026
  Serious: No
  Sender: FDA-Public Use
  Company Number: US-PFIZER INC-2020331675

PATIENT
  Age: 54 Year
  Sex: Female
  Weight: 69.388 kg

DRUGS (19)
  1. DOCETAXEL [Suspect]
     Active Substance: DOCETAXEL
     Indication: Breast cancer stage II
     Dosage: 134 MG, CYCLIC (EVERY THREE WEEKS FOR A TOTAL OF SIX CYCLES)
     Dates: start: 20140109, end: 20140508
  2. DOCETAXEL [Suspect]
     Active Substance: DOCETAXEL
     Dosage: UNK
     Dates: start: 20140110, end: 20140508
  3. DOCETAXEL [Suspect]
     Active Substance: DOCETAXEL
     Indication: Breast cancer stage II
     Dosage: 134 MG, CYCLIC (EVERY THREE WEEKS FOR A TOTAL OF SIX CYCLES)
     Dates: start: 20140109, end: 20140508
  4. TAXOTERE [Suspect]
     Active Substance: DOCETAXEL
     Indication: Breast cancer stage II
     Dosage: 134 MG, CYCLIC (EVERY THREE WEEKS FOR A TOTAL OF SIX CYCLES)
     Dates: start: 20140109, end: 20140508
  5. BUSPIRONE [Concomitant]
     Active Substance: BUSPIRONE HYDROCHLORIDE
     Dosage: 30 MG, 2X/DAY
     Dates: start: 20050101
  6. HYOSCYAMINE [Concomitant]
     Active Substance: HYOSCYAMINE
     Dosage: UNK (0.375, UNITS UNSPECIFIED)
     Dates: start: 19900101
  7. LEVOTHYROXINE [Concomitant]
     Active Substance: LEVOTHYROXINE
     Dosage: UNK
     Dates: start: 20090101
  8. LEXAPRO [Concomitant]
     Active Substance: ESCITALOPRAM OXALATE
     Dosage: UNK
     Dates: start: 20110101
  9. PRAVASTATIN [Concomitant]
     Active Substance: PRAVASTATIN
     Dosage: UNK
     Dates: start: 20100101
  10. PARAPLATIN [Concomitant]
     Active Substance: CARBOPLATIN
     Indication: Breast cancer stage II
     Dosage: 680 MG
     Dates: start: 20140109, end: 20140109
  11. PARAPLATIN [Concomitant]
     Active Substance: CARBOPLATIN
     Dosage: 750 MG
     Dates: start: 20140130, end: 20140130
  12. PARAPLATIN [Concomitant]
     Active Substance: CARBOPLATIN
     Dosage: 750 MG
     Dates: start: 20140227, end: 20140227
  13. PARAPLATIN [Concomitant]
     Active Substance: CARBOPLATIN
     Dosage: 620 MG
     Dates: start: 20140327, end: 20140327
  14. PARAPLATIN [Concomitant]
     Active Substance: CARBOPLATIN
     Dosage: 750 MG
     Dates: start: 20140417, end: 20140417
  15. PARAPLATIN [Concomitant]
     Active Substance: CARBOPLATIN
     Dosage: 630 MG
     Dates: start: 20140508, end: 20140508
  16. DECADRON [Concomitant]
     Active Substance: DEXAMETHASONE
     Dosage: UNK
  17. CLARITIN [Concomitant]
     Active Substance: LORATADINE
     Dosage: UNK
  18. PRILOSEC [Concomitant]
     Active Substance: OMEPRAZOLE MAGNESIUM
     Dosage: UNK
  19. ARIMIDEX [Concomitant]
     Active Substance: ANASTROZOLE
     Indication: Hormone therapy
     Dosage: UNK
     Dates: start: 20150101

REACTIONS (6)
  - Alopecia [Not Recovered/Not Resolved]
  - Madarosis [Not Recovered/Not Resolved]
  - Hair disorder [Not Recovered/Not Resolved]
  - Hair texture abnormal [Not Recovered/Not Resolved]
  - Hair colour changes [Not Recovered/Not Resolved]
  - Depression [Unknown]

NARRATIVE: CASE EVENT DATE: 20141108
